FAERS Safety Report 11288191 (Version 2)
Quarter: 2015Q3

REPORT INFORMATION
  Report Type: Spontaneous
  Country: US (occurrence: US)
  Receive Date: 20150721
  Receipt Date: 20150911
  Transmission Date: 20151125
  Serious: Yes (Hospitalization, Other)
  Sender: FDA-Public Use
  Company Number: US-AMGEN-USASP2015071915

PATIENT
  Sex: Female

DRUGS (1)
  1. ENBREL [Suspect]
     Active Substance: ETANERCEPT
     Indication: PRODUCT USED FOR UNKNOWN INDICATION
     Dosage: UNK
     Route: 065

REACTIONS (12)
  - Pruritus [Unknown]
  - Injection site erythema [Unknown]
  - Dry skin [Unknown]
  - Systemic lupus erythematosus [Unknown]
  - Gastrointestinal disorder [Unknown]
  - Bone disorder [Unknown]
  - Hospitalisation [Unknown]
  - Erythema [Unknown]
  - Fatigue [Unknown]
  - Injection site pruritus [Unknown]
  - Back pain [Unknown]
  - Urinary tract infection [Recovering/Resolving]

NARRATIVE: CASE EVENT DATE: 201410
